FAERS Safety Report 9663985 (Version 2)
Quarter: 2013Q4

REPORT INFORMATION
  Report Type: Spontaneous
  Country: JP (occurrence: JP)
  Receive Date: 20131101
  Receipt Date: 20131101
  Transmission Date: 20140711
  Serious: Yes (Death)
  Sender: FDA-Public Use
  Company Number: JP-BAYER-2013-127497

PATIENT
  Sex: 0

DRUGS (3)
  1. XARELTO [Suspect]
     Dosage: 15 MG, QD
     Route: 048
  2. BAYASPIRIN [Interacting]
     Dosage: DAILY DOSE 100 MG
     Route: 048
  3. PLAVIX [Interacting]
     Dosage: DAILY DOSE 75 MG
     Route: 048

REACTIONS (2)
  - Cerebral haemorrhage [Fatal]
  - Drug interaction [None]
